FAERS Safety Report 6712961-6 (Version None)
Quarter: 2010Q2

REPORT INFORMATION
  Report Type: 
  Country: None (occurrence: None)
  Receive Date: 20100506
  Receipt Date: 20100429
  Transmission Date: 20101027
  Serious: Yes (Other)
  Sender: FDA-Public Use
  Company Number: GB-NOVOPROD-301598

PATIENT
  Sex: Female
  Weight: 68.7 kg

DRUGS (10)
  1. NOVORAPID PENFILL [Suspect]
     Indication: TYPE 2 DIABETES MELLITUS
     Dosage: ACCORDING TO BLOOD GLUCOSE READINGS
     Route: 058
     Dates: start: 20080917
  2. NOVORAPID PENFILL [Suspect]
     Dosage: ACCORDING TO BLOOD GLUCOSE READINGS
     Dates: start: 20091124, end: 20091202
  3. NOVORAPID PENFILL [Suspect]
     Dosage: ACCORDING TO BLOOD GLUCOSE READINGS
     Dates: start: 20091202
  4. LANTUS [Concomitant]
     Indication: TYPE 2 DIABETES MELLITUS
     Dosage: UNK
     Route: 058
     Dates: start: 20080701
  5. BISOPROLOL [Concomitant]
     Indication: MYOCARDIAL ISCHAEMIA
     Dosage: 5 MG, QD
     Route: 048
     Dates: start: 20091221
  6. ISOSORBIDE [Concomitant]
     Indication: MYOCARDIAL ISCHAEMIA
     Dosage: 10 MG, BID
     Route: 048
     Dates: start: 20080423
  7. ASPIRIN [Concomitant]
     Indication: MYOCARDIAL ISCHAEMIA
     Dosage: 75 MG, QD
     Route: 048
     Dates: start: 20041215
  8. EZETIMIBE [Concomitant]
     Indication: HYPERCHOLESTEROLAEMIA
     Dosage: 10 MG, QD
     Route: 048
     Dates: start: 20080423
  9. VITAMIN B12                        /00056201/ [Concomitant]
     Dosage: 1 MG, UNK
     Dates: start: 20040803
  10. RAMIPRIL [Concomitant]
     Indication: HYPERTENSION
     Dosage: 10 MG, QD
     Route: 048
     Dates: start: 20040803

REACTIONS (5)
  - BLOOD GLUCOSE INCREASED [None]
  - DISORIENTATION [None]
  - DIZZINESS [None]
  - DRUG INEFFECTIVE [None]
  - MALAISE [None]
